FAERS Safety Report 7867520-9 (Version None)
Quarter: 2011Q4

REPORT INFORMATION
  Report Type: 
  Country: None (occurrence: None)
  Receive Date: 20111028
  Receipt Date: 20111019
  Transmission Date: 20120403
  Serious: Yes (Other)
  Sender: FDA-Public Use
  Company Number: PHHO2011TR17719

PATIENT

DRUGS (1)
  1. EVEROLIMUS [Suspect]
     Indication: RENAL CELL CARCINOMA
     Dosage: 10 MG, UNK
     Route: 048
     Dates: start: 20110801, end: 20111019

REACTIONS (3)
  - INTESTINAL PERFORATION [None]
  - NEOPLASM MALIGNANT [None]
  - NEOPLASM PROGRESSION [None]
